FAERS Safety Report 5205966-8 (Version None)
Quarter: 2006Q4

REPORT INFORMATION
  Report Type: 
  Country: None (occurrence: None)
  Receive Date: 20061027
  Receipt Date: 20060714
  Transmission Date: 20070319
  Serious: No
  Sender: FDA-Public Use
  Company Number: 200615952US

PATIENT
  Sex: Male

DRUGS (1)
  1. KETEK [Suspect]

REACTIONS (1)
  - ADVERSE EVENT [None]
